FAERS Safety Report 7627037-3 (Version None)
Quarter: 2011Q3

REPORT INFORMATION
  Report Type: 
  Country: None (occurrence: None)
  Receive Date: 20110721
  Receipt Date: 20110715
  Transmission Date: 20111222
  Serious: Yes (Life-Threatening, Disabling)
  Sender: FDA-Public Use
  Company Number: GB-MERCK-1102GBR00104

PATIENT
  Age: 78 Year
  Sex: Male

DRUGS (7)
  1. ATORVASTATIN [Suspect]
     Indication: HYPERCHOLESTEROLAEMIA
     Route: 048
  2. ALLOPURINOL [Concomitant]
     Route: 048
  3. AMLODIPINE [Concomitant]
     Route: 048
  4. LEVOTHYROXINE SODIUM [Concomitant]
     Route: 048
  5. OMEPRAZOLE [Concomitant]
     Route: 048
  6. ZOCOR [Suspect]
     Indication: HYPERCHOLESTEROLAEMIA
     Route: 048
  7. NAPROXEN [Concomitant]
     Route: 048

REACTIONS (12)
  - INTERSTITIAL LUNG DISEASE [None]
  - BLOOD IMMUNOGLOBULIN E INCREASED [None]
  - PULMONARY FIBROSIS [None]
  - GUTTATE PSORIASIS [None]
  - MACULAR HOLE [None]
  - AORTIC ANEURYSM [None]
  - BLOOD THYROID STIMULATING HORMONE ABNORMAL [None]
  - PLANTAR FASCIITIS [None]
  - HYPERCHOLESTEROLAEMIA [None]
  - DYSPNOEA [None]
  - ESSENTIAL HYPERTENSION [None]
  - GOUT [None]
